FAERS Safety Report 21775817 (Version 1)
Quarter: 2022Q4

REPORT INFORMATION
  Report Type: Spontaneous
  Country: US (occurrence: US)
  Receive Date: 20221226
  Receipt Date: 20221226
  Transmission Date: 20230112
  Serious: No
  Sender: FDA-Public Use
  Company Number: US-BioHaven Pharmaceuticals-2022BHV002280

PATIENT
  Age: 58 Year
  Sex: Female

DRUGS (2)
  1. NURTEC ODT [Suspect]
     Active Substance: RIMEGEPANT SULFATE
     Indication: Product used for unknown indication
     Dosage: RX SAYS QOD- PT STATED SHE WAS TAKING IT QD
     Route: 048
  2. NURTEC ODT [Suspect]
     Active Substance: RIMEGEPANT SULFATE
     Dosage: RX SAYS QOD- PT STATED SHE WAS TAKING IT QD
     Route: 048

REACTIONS (2)
  - Intentional product use issue [Unknown]
  - Nausea [Unknown]
